FAERS Safety Report 18261806 (Version 1)
Quarter: 2020Q3

REPORT INFORMATION
  Report Type: Spontaneous
  Country: US (occurrence: US)
  Receive Date: 20200914
  Receipt Date: 20200914
  Transmission Date: 20201103
  Serious: No
  Sender: FDA-Public Use
  Company Number: US-GW PHARMA-202009USGW03055

PATIENT

DRUGS (3)
  1. EPIDIOLEX [Suspect]
     Active Substance: CANNABIDIOL
     Indication: LENNOX-GASTAUT SYNDROME
     Dosage: 430 MILLIGRAM, BID
     Dates: start: 20190624
  2. EPIDIOLEX [Suspect]
     Active Substance: CANNABIDIOL
     Dosage: ADDITIONAL BATCH ADDED
  3. EPIDIOLEX [Suspect]
     Active Substance: CANNABIDIOL
     Dosage: ADDITIONAL BATCH ADDED

REACTIONS (2)
  - Insomnia [Not Recovered/Not Resolved]
  - Incorrect route of product administration [Unknown]

NARRATIVE: CASE EVENT DATE: 2020
